FAERS Safety Report 4870109-7 (Version None)
Quarter: 2005Q4

REPORT INFORMATION
  Report Type: 
  Country: None (occurrence: None)
  Receive Date: 20051229
  Receipt Date: 20051229
  Transmission Date: 20060501
  Serious: Yes (Hospitalization)
  Sender: FDA-Public Use
  Company Number: None

PATIENT
  Age: 55 Year
  Sex: Male
  Weight: 72.5755 kg

DRUGS (2)
  1. PIPERACILLIN/TAZOBACTAM     3.375 GM [Suspect]
     Indication: URINARY TRACT INFECTION
     Dosage: 3.375 GM    Q6HRS  IV
     Route: 042
     Dates: start: 20051104, end: 20051109
  2. AMPICILLIN AND SULBACTAM [Suspect]
     Dosage: 3 GM   Q6HRS   IV
     Route: 042
     Dates: start: 20051101, end: 20051105

REACTIONS (2)
  - DIARRHOEA [None]
  - MENTAL STATUS CHANGES [None]
